FAERS Safety Report 20246139 (Version 1)
Quarter: 2021Q4

REPORT INFORMATION
  Report Type: Spontaneous
  Country: US (occurrence: None)
  Receive Date: 20211228
  Receipt Date: 20211228
  Transmission Date: 20220303
  Serious: Yes (Hospitalization)
  Sender: FDA-Public Use
  Company Number: None

PATIENT
  Age: 79 Year
  Sex: Female
  Weight: 86 kg

DRUGS (1)
  1. TOCILIZUMAB [Suspect]
     Active Substance: TOCILIZUMAB
     Indication: COVID-19
     Dosage: FREQUENCY : ONCE;?
     Route: 040
     Dates: start: 20211214, end: 20211214

REACTIONS (5)
  - Culture positive [None]
  - Respiratory tract infection [None]
  - Aspergillus infection [None]
  - Fungal infection [None]
  - Acute respiratory distress syndrome [None]

NARRATIVE: CASE EVENT DATE: 20211226
